FAERS Safety Report 8874041 (Version 2)
Quarter: 2013Q1

REPORT INFORMATION
  Report Type: Report from Study
  Country: GB (occurrence: GB)
  Receive Date: 20121023
  Receipt Date: 20130307
  Transmission Date: 20140127
  Serious: Yes (Death)
  Sender: FDA-Public Use
  Company Number: GB-JNJFOC-20121010613

PATIENT
  Age: 87 Year
  Sex: Female
  Weight: 66 kg

DRUGS (2)
  1. REMICADE [Suspect]
     Indication: RHEUMATOID ARTHRITIS
     Route: 042
     Dates: start: 20050921, end: 20060616
  2. ALL OTHER THERAPEUTIC DRUG [Concomitant]
     Indication: RHEUMATOID ARTHRITIS

REACTIONS (1)
  - Lung neoplasm malignant [Fatal]
